FAERS Safety Report 8082542 (Version 9)
Quarter: 2012Q4

REPORT INFORMATION
  Report Type: Report from Study
  Country: JP (occurrence: JP)
  Receive Date: 20110809
  Receipt Date: 20121218
  Transmission Date: 20130627
  Serious: Yes (Hospitalization, Other)
  Sender: FDA-Public Use
  Company Number: PHHY2011JP55269

PATIENT
  Age: 61 Year
  Sex: Female
  Weight: 51 kg

DRUGS (12)
  1. AFINITOR [Suspect]
     Indication: METASTATIC RENAL CELL CARCINOMA
     Dosage: 10 mg, daily
     Route: 048
     Dates: start: 20110406, end: 20110421
  2. AFINITOR [Suspect]
     Dosage: 10 mg, daily
     Route: 048
     Dates: start: 20110425, end: 20110512
  3. AFINITOR [Suspect]
     Dosage: 5 mg, daily
     Route: 048
     Dates: start: 20110610, end: 20111213
  4. AFINITOR [Suspect]
     Dosage: 10 mg, daily
     Route: 048
     Dates: start: 20111214, end: 20120213
  5. BLOPRESS [Concomitant]
     Dosage: 8 mg, UNK
     Route: 048
  6. AZUNOL [Concomitant]
     Indication: PROPHYLAXIS
     Dates: start: 20110412
  7. SELBEX [Concomitant]
     Indication: PROPHYLAXIS
     Dosage: 50 mg, UNK
     Route: 048
     Dates: start: 20110420, end: 20110420
  8. CALONAL [Concomitant]
     Dosage: 1200 mg, UNK
     Route: 048
     Dates: start: 20110519
  9. DEXALTIN [Concomitant]
     Indication: PROPHYLAXIS
     Dosage: UNK UKN, UNK
  10. RINDERON-VG [Concomitant]
     Indication: PROPHYLAXIS
     Dosage: UNK
     Dates: start: 20110721
  11. INFLUENZA VACCINE [Concomitant]
  12. MUCODYNE [Concomitant]
     Indication: PROPHYLAXIS
     Dosage: 1500 mg, UNK
     Route: 048

REACTIONS (4)
  - Pneumonia aspiration [Recovering/Resolving]
  - Neutrophil count decreased [Recovered/Resolved]
  - Neoplasm progression [Not Recovered/Not Resolved]
  - Malignant neoplasm progression [Not Recovered/Not Resolved]
